FAERS Safety Report 6654088-8 (Version None)
Quarter: 2010Q1

REPORT INFORMATION
  Report Type: 
  Country: None (occurrence: None)
  Receive Date: 20100326
  Receipt Date: 20100317
  Transmission Date: 20100710
  Serious: Yes (Other)
  Sender: FDA-Public Use
  Company Number: PHHY2010DE15200

PATIENT
  Age: 79 Year
  Sex: Female

DRUGS (6)
  1. CORDINATE [Suspect]
     Dosage: 80 MG PER DAY
     Route: 048
     Dates: start: 20040101
  2. CORDINATE [Suspect]
     Dosage: 160 MG PER DAY
     Route: 048
  3. METOPROLOL [Concomitant]
     Dosage: 25 MG/DAY
     Route: 048
     Dates: start: 20100201
  4. CALCIUM CHANNEL BLOCKERS [Concomitant]
     Dosage: 5 MG/DAY
     Route: 048
  5. AMLODIPINE [Concomitant]
     Dosage: 5 MG/DAY
     Route: 048
  6. MELPERON [Concomitant]
     Indication: DEMENTIA
     Dosage: UNK
     Dates: start: 20080101

REACTIONS (6)
  - BLOOD PRESSURE INCREASED [None]
  - DEMENTIA [None]
  - DEMENTIA ALZHEIMER'S TYPE [None]
  - DRY SKIN [None]
  - ERYTHEMA [None]
  - TONGUE DISORDER [None]
